FAERS Safety Report 7034350-X (Version None)
Quarter: 2010Q4

REPORT INFORMATION
  Report Type: 
  Country: None (occurrence: None)
  Receive Date: 20101008
  Receipt Date: 20100924
  Transmission Date: 20110411
  Serious: Yes (Death)
  Sender: FDA-Public Use
  Company Number: PHHY2010NL63451

PATIENT
  Sex: Male

DRUGS (3)
  1. ZOMETA [Suspect]
     Dosage: 4 MG/5ML
     Dates: start: 20090622
  2. ZOMETA [Suspect]
     Dosage: 4MG/5ML
     Dates: start: 20100817
  3. CHEMOTHERAPEUTICS NOS [Concomitant]

REACTIONS (3)
  - MALAISE [None]
  - PROSTATE CANCER METASTATIC [None]
  - TERMINAL STATE [None]
